FAERS Safety Report 22361620 (Version 1)
Quarter: 2023Q2

REPORT INFORMATION
  Report Type: Report from Study
  Country: GB (occurrence: GB)
  Receive Date: 20230524
  Receipt Date: 20230524
  Transmission Date: 20230721
  Serious: Yes (Hospitalization)
  Sender: FDA-Public Use
  Company Number: GB-AGUETTANT-2023000612

PATIENT
  Age: 45 Year
  Sex: Male

DRUGS (12)
  1. WATER FOR INJECTION [Suspect]
     Active Substance: WATER
     Indication: Parenteral nutrition
     Dosage: 40 ML (23C31TH00078 (BATCH OF PERFUSION BAG), EXPIRY DATE (30APR2023))
     Dates: start: 20230428
  2. WATER [Suspect]
     Active Substance: WATER
     Indication: Parenteral nutrition
     Dosage: 750.03 ML (23C31TH00078 (BATCH OF PERFUSION BAG), EXPIRY DATE (30APR2023))
     Dates: start: 20230428
  3. CALCIUM CHLORIDE [Suspect]
     Active Substance: CALCIUM CHLORIDE
     Indication: Parenteral nutrition
     Dosage: 56 ML (1MMOL/ML,23C31TH00078 (BATCH OF PERFUSION BAG), EXPIRY DATE (30APR2023))
     Dates: start: 20230428
  4. CERNEVIT [Suspect]
     Active Substance: VITAMINS
     Indication: Parenteral nutrition
     Dosage: 40 ML (23C31TH00078 (BATCH OF PERFUSION BAG), EXPIRY DATE (30APR2023))
     Dates: start: 20230428
  5. OLIVE OIL\SOYBEAN OIL [Suspect]
     Active Substance: OLIVE OIL\SOYBEAN OIL
     Indication: Parenteral nutrition
     Dosage: 2200 ML (23C31TH00078 (BATCH OF PERFUSION BAG), EXPIRY DATE (30APR2023))
     Dates: start: 20230428
  6. DEXTROSE [Suspect]
     Active Substance: DEXTROSE\DEXTROSE MONOHYDRATE
     Indication: Parenteral nutrition
     Dosage: 3200 ML (23C31TH00078 (BATCH OF PERFUSION BAG), EXPIRY DATE (30APR2023))
     Dates: start: 20230428
  7. MAGNESIUM SULFATE [Suspect]
     Active Substance: MAGNESIUM SULFATE
     Indication: Parenteral nutrition
     Dosage: 32 ML (23C31TH00078 (BATCH OF PERFUSION BAG), EXPIRY DATE (30APR2023))
     Dates: start: 20230428
  8. IRON\MINERALS\POTASSIUM IOD\SODIUM FLUORIDE\SODIUM MOLYBDATE\SODIUM SE [Suspect]
     Active Substance: IRON\MINERALS\POTASSIUM IOD\SODIUM FLUORIDE\SODIUM MOLYBDATE\SODIUM SELENITE\ZINC
     Indication: Parenteral nutrition
     Dosage: 5 NIGHTS PER WEEK (23C31TH00078 (BATCH OF PERFUSION BAG), EXPIRY DATE (30APR2023))
     Route: 040
     Dates: start: 20230428
  9. POTASSIUM CHLORIDE [Suspect]
     Active Substance: POTASSIUM CHLORIDE
     Indication: Parenteral nutrition
     Dosage: 159.97 ML(23C31TH00078 (BATCH OF PERFUSION BAG), EXPIRY DATE (30APR2023))
     Dates: start: 20230428
  10. SODIUM CHLORIDE [Suspect]
     Active Substance: SODIUM CHLORIDE
     Indication: Parenteral nutrition
     Dosage: 50 ML (23C31TH00078 (BATCH OF PERFUSION BAG), EXPIRY DATE (30APR2023))
     Dates: start: 20230428
  11. SODIUM GLYCEROPHOSPHATE [Suspect]
     Active Substance: SODIUM GLYCEROPHOSPHATE
     Indication: Parenteral nutrition
     Dosage: 180 ML (23C31TH00078 (BATCH OF PERFUSION BAG), EXPIRY DATE (30APR2023))
     Dates: start: 20230428
  12. SYNTHAMIN [Suspect]
     Active Substance: AMINO ACIDS
     Indication: Parenteral nutrition
     Dosage: 5332 ML (23C31TH00078 (BATCH OF PERFUSION BAG), EXPIRY DATE (30APR2023))
     Dates: start: 20230428

REACTIONS (2)
  - Abdominal pain [Recovering/Resolving]
  - Product intolerance [Unknown]

NARRATIVE: CASE EVENT DATE: 20230501
